FAERS Safety Report 9274887 (Version 1)
Quarter: 2013Q2

REPORT INFORMATION
  Report Type: Spontaneous
  Country: US (occurrence: US)
  Receive Date: 20130507
  Receipt Date: 20130507
  Transmission Date: 20140414
  Serious: No
  Sender: FDA-Public Use
  Company Number: US-009507513-1305USA001365

PATIENT
  Age: 65 Year
  Sex: Female

DRUGS (1)
  1. DULERA [Suspect]
     Route: 055

REACTIONS (3)
  - Fall [Unknown]
  - Contusion [Unknown]
  - Pain [Unknown]
